FAERS Safety Report 5961080-5 (Version None)
Quarter: 2008Q4

REPORT INFORMATION
  Report Type: 
  Country: None (occurrence: None)
  Receive Date: 20081119
  Receipt Date: 20081106
  Transmission Date: 20090506
  Serious: Yes (Other)
  Sender: FDA-Public Use
  Company Number: CHPA2008US19248

PATIENT
  Age: 59 Year
  Sex: Female
  Weight: 70.3 kg

DRUGS (1)
  1. TRANSDERM SCOP [Suspect]
     Indication: MOTION SICKNESS
     Dosage: 1.5 MG, IN A DAY, TRANSDERMAL
     Route: 062
     Dates: start: 20081030, end: 20081030

REACTIONS (6)
  - DRUG INEFFECTIVE [None]
  - FEELING ABNORMAL [None]
  - MALAISE [None]
  - MOTION SICKNESS [None]
  - SYNCOPE [None]
  - VOMITING [None]
